FAERS Safety Report 14601696 (Version 3)
Quarter: 2018Q1

REPORT INFORMATION
  Report Type: Report from Study
  Country: IL (occurrence: IL)
  Receive Date: 20180306
  Receipt Date: 20180329
  Transmission Date: 20180509
  Serious: Yes (Hospitalization, Other)
  Sender: FDA-Public Use
  Company Number: IL-IPSEN BIOPHARMACEUTICALS, INC.-2018-03324

PATIENT
  Age: 59 Year
  Sex: Female

DRUGS (5)
  1. SOMATULINE [Suspect]
     Active Substance: LANREOTIDE ACETATE
     Indication: NEUROENDOCRINE TUMOUR
     Dosage: 120 MG
     Route: 065
     Dates: start: 20130417
  2. SOMATULINE [Suspect]
     Active Substance: LANREOTIDE ACETATE
     Dosage: 120 MG
     Route: 065
  3. CLARITHROMYCIN. [Suspect]
     Active Substance: CLARITHROMYCIN
     Indication: HELICOBACTER INFECTION
  4. MOXYPEN [Suspect]
     Active Substance: AMOXICILLIN
     Indication: HELICOBACTER INFECTION
  5. OMEPRADEX [Concomitant]
     Active Substance: OMEPRAZOLE

REACTIONS (8)
  - Malignant neoplasm progression [Unknown]
  - Prescribed overdose [Unknown]
  - Arthritis [Unknown]
  - Helicobacter infection [Unknown]
  - Drug eruption [Unknown]
  - Metastases to bone [Unknown]
  - Musculoskeletal pain [Unknown]
  - Inappropriate schedule of drug administration [Unknown]

NARRATIVE: CASE EVENT DATE: 201706
